FAERS Safety Report 17266817 (Version 2)
Quarter: 2020Q1

REPORT INFORMATION
  Report Type: Spontaneous
  Country: BR (occurrence: BR)
  Receive Date: 20200114
  Receipt Date: 20200116
  Transmission Date: 20200409
  Serious: No
  Sender: FDA-Public Use
  Company Number: BR-PFIZER INC-2020012692

PATIENT
  Sex: Male
  Weight: 58 kg

DRUGS (1)
  1. CAVERJECT [Suspect]
     Active Substance: ALPROSTADIL
     Indication: ERECTILE DYSFUNCTION
     Dosage: 20 MG, ONCE A WEEK
     Dates: start: 20090101, end: 20190901

REACTIONS (1)
  - No adverse event [Unknown]
